FAERS Safety Report 21253417 (Version 6)
Quarter: 2023Q4

REPORT INFORMATION
  Report Type: Spontaneous
  Country: US (occurrence: US)
  Receive Date: 20220825
  Receipt Date: 20231128
  Transmission Date: 20240110
  Serious: Yes (Other)
  Sender: FDA-Public Use
  Company Number: US-PFIZER INC-2021842251

PATIENT
  Age: 51 Year
  Sex: Female
  Weight: 62.6 kg

DRUGS (4)
  1. XELJANZ [Suspect]
     Active Substance: TOFACITINIB CITRATE
     Indication: Systemic lupus erythematosus
     Dosage: 10 MG, 2X/DAY
     Dates: end: 202105
  2. XELJANZ [Suspect]
     Active Substance: TOFACITINIB CITRATE
     Indication: Skin disorder
     Dosage: 10 MG, 2X/DAY
  3. XELJANZ [Suspect]
     Active Substance: TOFACITINIB CITRATE
     Indication: Dermatomyositis
     Dosage: 5 MG, 1X/DAY
     Route: 048
  4. XELJANZ [Suspect]
     Active Substance: TOFACITINIB CITRATE
     Dosage: 5 MG, 2X/DAY
     Route: 048

REACTIONS (13)
  - Cholecystectomy [Unknown]
  - Drug effective for unapproved indication [Unknown]
  - Skin disorder [Unknown]
  - Condition aggravated [Not Recovered/Not Resolved]
  - Myalgia [Unknown]
  - Abdominal pain upper [Not Recovered/Not Resolved]
  - Hypoaesthesia [Unknown]
  - Muscle spasms [Unknown]
  - Influenza [Unknown]
  - Skin depigmentation [Unknown]
  - Ephelides [Unknown]
  - Product prescribing error [Unknown]
  - Off label use [Unknown]

NARRATIVE: CASE EVENT DATE: 20220101
